FAERS Safety Report 6152815-X (Version None)
Quarter: 2009Q2

REPORT INFORMATION
  Report Type: 
  Country: None (occurrence: None)
  Receive Date: 20090413
  Receipt Date: 20090320
  Transmission Date: 20091009
  Serious: Yes (Other)
  Sender: FDA-Public Use
  Company Number: US-PFIZER INC-2009181008

PATIENT
  Sex: Female
  Weight: 104.32 kg

DRUGS (3)
  1. DILANTIN-125 [Suspect]
     Indication: CONVULSION
     Dosage: 100 MG, 3X/DAY
  2. METOPROLOL TARTRATE [Interacting]
     Indication: HYPERTENSION
     Dosage: 50 MG, 1X/DAY
  3. DRUG, UNSPECIFIED [Interacting]

REACTIONS (16)
  - ARTHRALGIA [None]
  - BALANCE DISORDER [None]
  - CONFUSIONAL STATE [None]
  - CONVULSION [None]
  - DIARRHOEA [None]
  - DIZZINESS [None]
  - DRUG INTERACTION [None]
  - DYSPNOEA [None]
  - EATING DISORDER [None]
  - HYPERSENSITIVITY [None]
  - MEMORY IMPAIRMENT [None]
  - NAUSEA [None]
  - PAIN IN EXTREMITY [None]
  - SWOLLEN TONGUE [None]
  - VOMITING [None]
  - WEIGHT INCREASED [None]
